FAERS Safety Report 26015971 (Version 1)
Quarter: 2025Q4

REPORT INFORMATION
  Report Type: Other
  Country: EU (occurrence: EU)
  Receive Date: 20251109
  Receipt Date: 20251109
  Transmission Date: 20260118
  Serious: Yes (Death)
  Sender: Atnahs Healthcare
  Company Number: EU-AFSSAPS-AVCN20220773

PATIENT

DRUGS (12)
  1. DIAZEPAM [Suspect]
     Active Substance: DIAZEPAM
     Indication: Product used for unknown indication
     Dosage: UNK
     Route: 065
     Dates: end: 20191003
  2. DIAZEPAM [Suspect]
     Active Substance: DIAZEPAM
     Dosage: UNK
     Route: 048
     Dates: end: 202301
  3. METHADONE [Suspect]
     Active Substance: METHADONE HYDROCHLORIDE
     Indication: Product used for unknown indication
     Route: 065
     Dates: end: 20191003
  4. METHADONE [Suspect]
     Active Substance: METHADONE HYDROCHLORIDE
     Dosage: UNK
     Route: 065
     Dates: end: 202301
  5. OXAZEPAM [Suspect]
     Active Substance: OXAZEPAM
     Indication: Product used for unknown indication
     Dosage: UNK
     Route: 065
     Dates: end: 20191003
  6. ALCOHOL [Suspect]
     Active Substance: ALCOHOL
     Indication: Product used for unknown indication
     Dosage: UNK
     Route: 065
     Dates: end: 20191003
  7. TEMAZEPAM [Suspect]
     Active Substance: TEMAZEPAM
     Indication: Product used for unknown indication
     Dosage: UNK
     Route: 065
     Dates: end: 20191003
  8. NORDAZEPAM [Suspect]
     Active Substance: NORDAZEPAM
     Indication: Product used for unknown indication
     Dosage: UNK
     Route: 065
     Dates: end: 20191003
  9. .DELTA.9-TETRAHYDROCANNABINOL\HERBALS [Suspect]
     Active Substance: .DELTA.9-TETRAHYDROCANNABINOL\HERBALS
     Indication: Product used for unknown indication
     Dosage: UNK
     Route: 065
     Dates: end: 20191003
  10. COCAINE [Suspect]
     Active Substance: COCAINE
     Indication: Product used for unknown indication
     Dosage: UNK
     Route: 065
     Dates: end: 202301
  11. QUETIAPINE [Suspect]
     Active Substance: QUETIAPINE
     Indication: Product used for unknown indication
     Dosage: UNK
     Route: 048
     Dates: end: 202301
  12. PAROXETINE HYDROCHLORIDE [Suspect]
     Active Substance: PAROXETINE HYDROCHLORIDE
     Indication: Product used for unknown indication
     Dosage: UNK
     Route: 065
     Dates: end: 202301

REACTIONS (4)
  - Asphyxia [Fatal]
  - Drug abuse [Fatal]
  - Aspiration [Fatal]
  - Cardio-respiratory arrest [Fatal]
